FAERS Safety Report 16904384 (Version 1)
Quarter: 2019Q4

REPORT INFORMATION
  Report Type: Spontaneous
  Country: FR (occurrence: FR)
  Receive Date: 20191010
  Receipt Date: 20191010
  Transmission Date: 20200122
  Serious: Yes (Other)
  Sender: FDA-Public Use
  Company Number: FR-BAYER-2019-179121

PATIENT
  Age: 75 Year
  Sex: Male

DRUGS (7)
  1. NEXAVAR [Suspect]
     Active Substance: SORAFENIB
     Indication: MALIGNANT PERITONEAL NEOPLASM
     Dosage: 200 MG, BID (200 MG IN MORNING AND 200 MG EVENING)
  2. BARACLUDE [Concomitant]
     Active Substance: ENTECAVIR
     Dosage: 1 MG
  3. STIVARGA [Suspect]
     Active Substance: REGORAFENIB
     Dosage: DAILY DOSE 120 MG (21 DAYS ON/7 DAYS OFF)
  4. NEXAVAR [Suspect]
     Active Substance: SORAFENIB
     Indication: HEPATOCELLULAR CARCINOMA
     Dosage: DAILY DOSE 800 MG
     Dates: start: 201701
  5. STIVARGA [Suspect]
     Active Substance: REGORAFENIB
     Dosage: DAILY DOSE 40 MG (DAILY FOR 21 DAYS WITH 7 DAYS OFF)
     Dates: start: 20181213
  6. STIVARGA [Suspect]
     Active Substance: REGORAFENIB
     Dosage: DAILY DOSE 80 MG (21 DAYS ON/7 DAYS OFF)
  7. NEXAVAR [Suspect]
     Active Substance: SORAFENIB
     Indication: HEPATITIS B

REACTIONS (6)
  - Diarrhoea [None]
  - Drug intolerance [None]
  - Pain [Recovering/Resolving]
  - Alpha 1 foetoprotein increased [None]
  - Hepatocellular carcinoma [Recovering/Resolving]
  - Asthenia [None]

NARRATIVE: CASE EVENT DATE: 20190913
